FAERS Safety Report 5499066-X (Version None)
Quarter: 2007Q4

REPORT INFORMATION
  Report Type: 
  Country: None (occurrence: None)
  Receive Date: 20071026
  Receipt Date: 20070726
  Transmission Date: 20080405
  Serious: Yes (Other)
  Sender: FDA-Public Use
  Company Number: A0652975A

PATIENT
  Sex: Male

DRUGS (3)
  1. ADVAIR DISKUS 100/50 [Suspect]
     Indication: BRONCHITIS
     Route: 055
     Dates: start: 20070510
  2. METHYLPREDNISOLONE [Suspect]
     Indication: BRONCHITIS
     Dosage: 6TAB PER DAY
     Route: 048
     Dates: start: 20070410
  3. AMOXICILLIN [Concomitant]
     Indication: BRONCHITIS
     Dates: start: 20070410

REACTIONS (5)
  - BRONCHITIS [None]
  - GAIT DISTURBANCE [None]
  - PHARMACEUTICAL PRODUCT COMPLAINT [None]
  - PNEUMONIA [None]
  - RESPIRATORY DISORDER [None]
